FAERS Safety Report 5047064-2 (Version None)
Quarter: 2006Q3

REPORT INFORMATION
  Report Type: 
  Country: None (occurrence: None)
  Receive Date: 20060703
  Receipt Date: 20060620
  Transmission Date: 20061208
  Serious: Yes (Hospitalization)
  Sender: FDA-Public Use
  Company Number: 2006074277

PATIENT
  Age: 67 Year
  Sex: Male
  Weight: 89.5 kg

DRUGS (13)
  1. SUTENT [Suspect]
     Indication: METASTATIC RENAL CELL CARCINOMA
     Dosage: SEE IMAGE
     Route: 048
     Dates: start: 20040817, end: 20041220
  2. SUTENT [Suspect]
     Indication: METASTATIC RENAL CELL CARCINOMA
     Dosage: SEE IMAGE
     Route: 048
     Dates: start: 20041221, end: 20050909
  3. SUTENT [Suspect]
     Indication: METASTATIC RENAL CELL CARCINOMA
     Dosage: SEE IMAGE
     Route: 048
     Dates: start: 20050919
  4. LIPITOR [Concomitant]
  5. LORAZEPAM [Concomitant]
  6. VITAMIN C (VITAMIN C) [Concomitant]
  7. VITAMIN E [Concomitant]
  8. ASPIRIN [Concomitant]
  9. DILTIAZEM [Concomitant]
  10. ADVIL [Concomitant]
  11. LOPERAMIDE HCL [Concomitant]
  12. PRILOSEC [Concomitant]
  13. SYNTHROID [Concomitant]

REACTIONS (6)
  - ASTHENIA [None]
  - FATIGUE [None]
  - HYPOTENSION [None]
  - HYPOTHERMIA [None]
  - HYPOTHYROIDISM [None]
  - RENAL FAILURE ACUTE [None]
